FAERS Safety Report 16590709 (Version 1)
Quarter: 2019Q3

REPORT INFORMATION
  Report Type: Spontaneous
  Country: US (occurrence: US)
  Receive Date: 20190718
  Receipt Date: 20190718
  Transmission Date: 20191004
  Serious: Yes (Other)
  Sender: FDA-Public Use
  Company Number: US-ASTELLAS-2019US028747

PATIENT
  Age: 86 Year
  Sex: Female

DRUGS (6)
  1. MYRBETRIQ [Suspect]
     Active Substance: MIRABEGRON
     Indication: URINARY TRACT INFECTION
     Route: 065
     Dates: start: 20190710, end: 20190711
  2. MYRBETRIQ [Interacting]
     Active Substance: MIRABEGRON
     Indication: RENAL DISORDER
  3. LISINOPRIL. [Concomitant]
     Active Substance: LISINOPRIL
     Indication: HYPERTENSION
     Dosage: UNK UNK, UNKNOWN FREQ.
     Route: 065
  4. MYRBETRIQ [Interacting]
     Active Substance: MIRABEGRON
     Indication: CYSTITIS
  5. METOPROLOL. [Concomitant]
     Active Substance: METOPROLOL
     Indication: HYPERTENSION
     Dosage: UNK UNK, TWICE DAILY
     Route: 065
  6. MYRBETRIQ [Interacting]
     Active Substance: MIRABEGRON
     Indication: BLADDER IRRITATION

REACTIONS (4)
  - Headache [Unknown]
  - Drug interaction [Unknown]
  - Hypertensive crisis [Unknown]
  - Product use in unapproved indication [Unknown]

NARRATIVE: CASE EVENT DATE: 201907
